FAERS Safety Report 21000948 (Version 2)
Quarter: 2022Q3

REPORT INFORMATION
  Report Type: Spontaneous
  Country: TR (occurrence: TR)
  Receive Date: 20220624
  Receipt Date: 20220708
  Transmission Date: 20221027
  Serious: Yes (Other)
  Sender: FDA-Public Use
  Company Number: TR-TEVA-2022-TR-2050201

PATIENT
  Age: 16 Year
  Sex: Female

DRUGS (1)
  1. PREGABALIN [Suspect]
     Active Substance: PREGABALIN
     Indication: Drug abuse
     Dosage: 900-1500 MG/DAY
     Route: 065

REACTIONS (7)
  - Withdrawal syndrome [Unknown]
  - Hyperhidrosis [Unknown]
  - Decreased appetite [Unknown]
  - Insomnia [Unknown]
  - Irritability [Unknown]
  - Drug abuse [Unknown]
  - Overdose [Unknown]
